FAERS Safety Report 11313171 (Version 1)
Quarter: 2015Q3

REPORT INFORMATION
  Report Type: Report from Study
  Country: US (occurrence: US)
  Receive Date: 20150727
  Receipt Date: 20150727
  Transmission Date: 20151125
  Serious: No
  Sender: FDA-Public Use
  Company Number: US-ABBVIE-15P-163-1373372-00

PATIENT
  Sex: Female

DRUGS (1)
  1. LEVOTHYROXINE. [Suspect]
     Active Substance: LEVOTHYROXINE
     Indication: PRODUCT USED FOR UNKNOWN INDICATION
     Route: 048
     Dates: start: 20120611

REACTIONS (6)
  - Hormone level abnormal [Unknown]
  - Feeling jittery [Unknown]
  - Pollakiuria [Unknown]
  - Insomnia [Unknown]
  - Feeling abnormal [Unknown]
  - Night sweats [Unknown]
